FAERS Safety Report 9852598 (Version 1)
Quarter: 2014Q1

REPORT INFORMATION
  Report Type: Spontaneous
  Country: US (occurrence: US)
  Receive Date: 20140129
  Receipt Date: 20140129
  Transmission Date: 20141002
  Serious: No
  Sender: FDA-Public Use
  Company Number: US-GLAXOSMITHKLINE-A1038953A

PATIENT
  Sex: Female

DRUGS (1)
  1. MEPRON [Suspect]
     Indication: BABESIOSIS
     Dates: start: 20130820

REACTIONS (1)
  - Off label use [Unknown]
